FAERS Safety Report 8445718-9 (Version None)
Quarter: 2012Q2

REPORT INFORMATION
  Report Type: 
  Country: None (occurrence: None)
  Receive Date: 20120618
  Receipt Date: 20120615
  Transmission Date: 20120825
  Serious: Yes (Life-Threatening, Disabling)
  Sender: FDA-Public Use
  Company Number: US-GLAXOSMITHKLINE-A0981410A

PATIENT
  Age: 49 Year
  Sex: Male

DRUGS (2)
  1. SORIATANE [Suspect]
     Indication: PSORIASIS
     Dosage: 25MG PER DAY
     Route: 048
     Dates: start: 20120307, end: 20120308
  2. PREDNISONE [Concomitant]

REACTIONS (2)
  - DERMATITIS EXFOLIATIVE [None]
  - CHILLS [None]
